FAERS Safety Report 7280483-2 (Version None)
Quarter: 2011Q1

REPORT INFORMATION
  Report Type: 
  Country: None (occurrence: None)
  Receive Date: 20110208
  Receipt Date: 20110131
  Transmission Date: 20110831
  Serious: Yes (Death)
  Sender: FDA-Public Use
  Company Number: HK-ROCHE-756873

PATIENT
  Age: 70 Year
  Sex: Female

DRUGS (2)
  1. ANTIBIOTIC NOS [Concomitant]
  2. TAMIFLU [Suspect]
     Route: 065

REACTIONS (1)
  - DRUG INEFFECTIVE [None]
